FAERS Safety Report 7548693-4 (Version None)
Quarter: 2011Q2

REPORT INFORMATION
  Report Type: 
  Country: None (occurrence: None)
  Receive Date: 20110524
  Receipt Date: 20110203
  Transmission Date: 20111010
  Serious: No
  Sender: FDA-Public Use
  Company Number: 026782

PATIENT
  Sex: Female
  Weight: 90.7 kg

DRUGS (8)
  1. OXYCODONE HCL [Concomitant]
  2. ENTOCORT EC [Concomitant]
  3. FLAGYL [Concomitant]
  4. CIMZIA [Suspect]
     Indication: CROHN'S DISEASE
     Dosage: (400 MG 1X/2 WEEKS SUBCUTANEOUS) ; (400 MG 1X/4 WEEKS SUBCUTANEOUS)
     Route: 058
     Dates: start: 20100201, end: 20100301
  5. CIMZIA [Suspect]
     Indication: CROHN'S DISEASE
     Dosage: (400 MG 1X/2 WEEKS SUBCUTANEOUS) ; (400 MG 1X/4 WEEKS SUBCUTANEOUS)
     Route: 058
     Dates: start: 20100301
  6. ACETAMINOPHEN [Concomitant]
  7. MULTIVITAMINS PLUS IRON [Concomitant]
  8. MESALAMINE [Concomitant]

REACTIONS (2)
  - RECTAL ABSCESS [None]
  - PROCTALGIA [None]
